FAERS Safety Report 8771897 (Version 10)
Quarter: 2019Q4

REPORT INFORMATION
  Report Type: Spontaneous
  Country: GB (occurrence: GB)
  Receive Date: 20120906
  Receipt Date: 20191114
  Transmission Date: 20200122
  Serious: Yes (Other)
  Sender: FDA-Public Use
  Company Number: GB-JNJFOC-20120900342

PATIENT
  Age: 15 Year
  Sex: Female

DRUGS (4)
  1. LAMICTAL [Suspect]
     Active Substance: LAMOTRIGINE
     Indication: BIPOLAR DISORDER
     Dosage: 3 / 1DAYS
     Route: 048
  2. CETIRIZINE HYDROCHLORIDE. [Suspect]
     Active Substance: CETIRIZINE HYDROCHLORIDE
     Indication: SEASONAL ALLERGY
     Dosage: OCCASIONAL CETIRIZINE
     Route: 048
  3. ABILIFY [Suspect]
     Active Substance: ARIPIPRAZOLE
     Indication: BIPOLAR DISORDER
     Dosage: 1 TRIMESTER
     Route: 065
  4. NEXPLANON [Interacting]
     Active Substance: ETONOGESTREL
     Indication: CONTRACEPTION
     Dosage: IN FIRST TRIMESTER,PL 00065/0161
     Route: 059

REACTIONS (5)
  - Abortion spontaneous [Unknown]
  - Drug interaction [Unknown]
  - Pregnancy with contraceptive device [Recovered/Resolved]
  - Metrorrhagia [Unknown]
  - Maternal exposure during pregnancy [Recovered/Resolved]
